FAERS Safety Report 23283316 (Version 1)
Quarter: 2023Q4

REPORT INFORMATION
  Report Type: Spontaneous
  Country: US (occurrence: US)
  Receive Date: 20231211
  Receipt Date: 20231211
  Transmission Date: 20240109
  Serious: Yes (Disabling)
  Sender: FDA-Public Use
  Company Number: US-SA-SAC20231206000968

PATIENT
  Sex: Female

DRUGS (1)
  1. KEVZARA [Suspect]
     Active Substance: SARILUMAB
     Indication: Rheumatoid arthritis
     Dosage: 200 MG, QOW
     Route: 058

REACTIONS (8)
  - Loss of personal independence in daily activities [Unknown]
  - Gait disturbance [Unknown]
  - Pain [Unknown]
  - Peripheral swelling [Recovering/Resolving]
  - Constipation [Unknown]
  - Rash [Unknown]
  - Skin burning sensation [Unknown]
  - Finger deformity [Unknown]
